FAERS Safety Report 15209666 (Version 1)
Quarter: 2018Q3

REPORT INFORMATION
  Report Type: Spontaneous
  Country: US (occurrence: US)
  Receive Date: 20180727
  Receipt Date: 20180727
  Transmission Date: 20181010
  Serious: Yes (Death)
  Sender: FDA-Public Use
  Company Number: US-SYNEX-T201803118

PATIENT

DRUGS (1)
  1. INOMAX [Suspect]
     Active Substance: NITRIC OXIDE
     Indication: PULMONARY HYPOPLASIA
     Dosage: UNK
     Route: 065

REACTIONS (1)
  - Death [Fatal]
